FAERS Safety Report 7340646-4 (Version None)
Quarter: 2011Q1

REPORT INFORMATION
  Report Type: 
  Country: None (occurrence: None)
  Receive Date: 20110309
  Receipt Date: 20110302
  Transmission Date: 20110831
  Serious: Yes (Hospitalization)
  Sender: FDA-Public Use
  Company Number: CA-ROCHE-745730

PATIENT
  Sex: Female
  Weight: 110.7 kg

DRUGS (16)
  1. RAMIPRIL [Concomitant]
     Indication: BLOOD PRESSURE
  2. VERAPAMIL [Concomitant]
  3. TOCILIZUMAB [Suspect]
     Route: 042
     Dates: start: 20101208
  4. PREDNISONE [Concomitant]
     Dates: start: 20110225
  5. FOSAMAX [Concomitant]
  6. VITAMIN B-12 [Concomitant]
  7. METHOTREXATE [Concomitant]
     Route: 058
  8. SYNTHROID [Concomitant]
  9. CALCIUM [Concomitant]
     Route: 048
  10. TOCILIZUMAB [Suspect]
     Indication: RHEUMATOID ARTHRITIS
     Dosage: FORM: INFUSION
     Route: 042
     Dates: start: 20100809
  11. VITAMINE D [Concomitant]
  12. PREDNISONE [Concomitant]
  13. FOLIC ACID [Concomitant]
  14. AGGRENOX [Concomitant]
     Route: 048
  15. IRON [Concomitant]
  16. WARFARIN SODIUM [Concomitant]

REACTIONS (13)
  - DYSPHONIA [None]
  - BLOOD CHOLESTEROL INCREASED [None]
  - MIDDLE EAR EFFUSION [None]
  - NASOPHARYNGITIS [None]
  - ARTHRALGIA [None]
  - DYSPNOEA [None]
  - ATRIAL FIBRILLATION [None]
  - NASAL CONGESTION [None]
  - SCLERAL DISCOLOURATION [None]
  - ORAL HERPES [None]
  - COUGH [None]
  - JOINT STIFFNESS [None]
  - JOINT SWELLING [None]
